FAERS Safety Report 24293206 (Version 1)
Quarter: 2024Q3

REPORT INFORMATION
  Report Type: Spontaneous
  Country: US (occurrence: None)
  Receive Date: 20240906
  Receipt Date: 20240906
  Transmission Date: 20241017
  Serious: No
  Sender: DOMPE FARMACEUTICI
  Company Number: US-FARMAPROD-202308-202312-3589

PATIENT
  Age: 55 Year
  Sex: Female
  Weight: 52.16 kg

DRUGS (27)
  1. OXERVATE [Suspect]
     Active Substance: CENEGERMIN-BKBJ
     Indication: Neurotrophic keratopathy
     Route: 047
     Dates: start: 20231127
  2. OXERVATE [Suspect]
     Active Substance: CENEGERMIN-BKBJ
  3. ARTIFICIAL TEARS [Concomitant]
     Dosage: 0.3%-1%
  4. POLYMYXIN B SULFATE\TRIMETHOPRIM [Concomitant]
     Active Substance: POLYMYXIN B SULFATE\TRIMETHOPRIM
  5. MOXIFLOXACIN [Concomitant]
     Active Substance: MOXIFLOXACIN
  6. TRELEGY ELLIPTA [Concomitant]
     Active Substance: FLUTICASONE FUROATE\UMECLIDINIUM BROMIDE\VILANTEROL TRIFENATATE
     Dosage: 100-62.5 BLISTER WITH DEVICE.
  7. ALPRAZOLAM [Concomitant]
     Active Substance: ALPRAZOLAM
  8. MAGNESIUM [Concomitant]
     Active Substance: MAGNESIUM
  9. RIZATRIPTAN [Concomitant]
     Active Substance: RIZATRIPTAN
  10. FLUOXETINE HYDROCHLORIDE [Concomitant]
     Active Substance: FLUOXETINE HYDROCHLORIDE
  11. FLUOXETINE HYDROCHLORIDE [Concomitant]
     Active Substance: FLUOXETINE HYDROCHLORIDE
  12. XIIDRA [Concomitant]
     Active Substance: LIFITEGRAST
  13. HYDROXYZINE HYDROCHLORIDE [Concomitant]
     Active Substance: HYDROXYZINE HYDROCHLORIDE
  14. SODIUM BICARBONATE [Concomitant]
     Active Substance: SODIUM BICARBONATE
  15. ALBUTEROL SULFATE [Concomitant]
     Active Substance: ALBUTEROL SULFATE
     Dosage: 2.5 MG/3ML VIAL-NEBULIZER
  16. TEMAZEPAM [Concomitant]
     Active Substance: TEMAZEPAM
  17. NORVASC [Concomitant]
     Active Substance: AMLODIPINE BESYLATE
  18. DIPHENOXYLATE/ATROPIN [Concomitant]
     Dosage: 2.5-.025MG
  19. OPIUM TINCTURE [Concomitant]
     Active Substance: MORPHINE
     Dosage: TINCTURE.
  20. MIRTAZAPINE [Concomitant]
     Active Substance: MIRTAZAPINE
  21. POTASSIUM CHLORIDE [Concomitant]
     Active Substance: POTASSIUM CHLORIDE
  22. EMTRIVA [Concomitant]
     Active Substance: EMTRICITABINE
  23. TIVICAY [Concomitant]
     Active Substance: DOLUTEGRAVIR SODIUM
  24. ONDANSETRON HYDROCHLORIDE [Concomitant]
     Active Substance: ONDANSETRON HYDROCHLORIDE
  25. GABAPENTIN [Concomitant]
     Active Substance: GABAPENTIN
  26. CREON [Concomitant]
     Active Substance: PANCRELIPASE AMYLASE\PANCRELIPASE LIPASE\PANCRELIPASE PROTEASE
     Dosage: 36K-114K
  27. ALBUTEROL SULFATE [Concomitant]
     Active Substance: ALBUTEROL SULFATE
     Dosage: HYDROFLUOROALKANE, AEROSOL WITH ADAPTER.

REACTIONS (3)
  - Eye irritation [Unknown]
  - Photophobia [Unknown]
  - Product administered at inappropriate site [Unknown]

NARRATIVE: CASE EVENT DATE: 20231129
